FAERS Safety Report 8969872 (Version 2)
Quarter: 2013Q1

REPORT INFORMATION
  Report Type: Report from Study
  Country: IT (occurrence: IT)
  Receive Date: 20121218
  Receipt Date: 20130301
  Transmission Date: 20140127
  Serious: Yes (Death, Life-Threatening, Hospitalization)
  Sender: FDA-Public Use
  Company Number: IT-CELGENEUS-083-21880-12121165

PATIENT
  Age: 49 Year
  Sex: Male

DRUGS (3)
  1. REVLIMID [Suspect]
     Indication: MANTLE CELL LYMPHOMA
     Dosage: 15 MILLIGRAM
     Route: 048
     Dates: start: 20111223
  2. REVLIMID [Suspect]
     Route: 048
     Dates: start: 20121128, end: 20121204
  3. ACETYLSALICYLIC ACID [Concomitant]
     Indication: PRODUCT USED FOR UNKNOWN INDICATION
     Dosage: 100 MILLIGRAM
     Route: 065
     Dates: start: 20121128, end: 20121204

REACTIONS (1)
  - Thrombotic thrombocytopenic purpura [Fatal]
